FAERS Safety Report 22634350 (Version 1)
Quarter: 2023Q2

REPORT INFORMATION
  Report Type: Spontaneous
  Country: US (occurrence: US)
  Receive Date: 20230623
  Receipt Date: 20230623
  Transmission Date: 20230722
  Serious: No
  Sender: FDA-Public Use
  Company Number: US-BAYER-2023A081699

PATIENT
  Age: 44 Year
  Sex: Female

DRUGS (1)
  1. CLIMARA [Suspect]
     Active Substance: ESTRADIOL
     Indication: Menopausal symptoms
     Dosage: UNK
     Route: 062

REACTIONS (3)
  - Skin irritation [Recovered/Resolved]
  - Product temperature excursion issue [Recovered/Resolved]
  - Device use issue [None]
